FAERS Safety Report 6044224-9 (Version None)
Quarter: 2009Q1

REPORT INFORMATION
  Report Type: 
  Country: None (occurrence: None)
  Receive Date: 20090120
  Receipt Date: 20080724
  Transmission Date: 20090719
  Serious: No
  Sender: FDA-Public Use
  Company Number: US-BAYER-200813156BCC

PATIENT
  Sex: Female

DRUGS (2)
  1. FINACEA [Suspect]
     Indication: SKIN DISCOLOURATION
     Route: 061
     Dates: start: 20080401, end: 20080717
  2. FINACEA [Suspect]
     Route: 061
     Dates: start: 20080401, end: 20080717

REACTIONS (1)
  - APPLICATION SITE IRRITATION [None]
